FAERS Safety Report 8790804 (Version 1)
Quarter: 2012Q4

REPORT INFORMATION
  Report Type: Spontaneous
  Country: US (occurrence: None)
  Receive Date: 20120912
  Receipt Date: 20120912
  Transmission Date: 20130627
  Serious: Yes (Life-Threatening)
  Sender: FDA-Public Use
  Company Number: None

PATIENT
  Age: 72 Year
  Sex: Male
  Weight: 86.5 kg

DRUGS (2)
  1. DAPTOMYCIN [Suspect]
     Indication: VANCOMYCIN-RESISTANT ENTEROCOCCAL INFECTION
     Route: 042
     Dates: start: 20120126, end: 20120205
  2. DAPTOMYCIN [Suspect]
     Indication: BACTEREMIA
     Route: 042
     Dates: start: 20120126, end: 20120205

REACTIONS (1)
  - Rhabdomyolysis [None]
